FAERS Safety Report 6313014-1 (Version None)
Quarter: 2009Q3

REPORT INFORMATION
  Report Type: 
  Country: None (occurrence: None)
  Receive Date: 20090818
  Receipt Date: 20090810
  Transmission Date: 20100115
  Serious: Yes (Other)
  Sender: FDA-Public Use
  Company Number: PHHY2009KR33952

PATIENT
  Age: 56 Year
  Sex: Female

DRUGS (4)
  1. DICLOFENAC [Suspect]
     Indication: PAIN
  2. PREDNISOLONE [Suspect]
  3. LEVOFLOXACIN [Suspect]
  4. ALCOHOL [Suspect]

REACTIONS (4)
  - CORNEAL LESION [None]
  - KERATITIS [None]
  - KERATOPATHY [None]
  - VISUAL ACUITY REDUCED [None]
